FAERS Safety Report 5856100-2 (Version None)
Quarter: 2008Q3

REPORT INFORMATION
  Report Type: 
  Country: None (occurrence: None)
  Receive Date: 20080825
  Receipt Date: 20080819
  Transmission Date: 20090109
  Serious: Yes (Death, Hospitalization)
  Sender: FDA-Public Use
  Company Number: JP-BAYER-200811567BYL

PATIENT
  Age: 64 Year
  Sex: Male

DRUGS (14)
  1. NEXAVAR [Suspect]
     Indication: RENAL CELL CARCINOMA STAGE IV
     Dosage: TOTAL DAILY DOSE: 800 MG  UNIT DOSE: 200 MG
     Route: 048
     Dates: start: 20080625
  2. NEXAVAR [Suspect]
     Route: 048
  3. HARNAL D [Concomitant]
     Indication: BENIGN PROSTATIC HYPERPLASIA
     Dosage: AS USED: 0.2 MG
     Route: 048
  4. ZYLORIC [Concomitant]
     Indication: HYPERURICAEMIA
     Dosage: AS USED: 100 MG
     Route: 048
  5. MUCOSTA [Concomitant]
     Indication: GASTRITIS PROPHYLAXIS
     Dosage: AS USED: 300 MG
     Route: 048
  6. PRIMPERAN INJ [Concomitant]
     Indication: NAUSEA
     Dosage: AS USED: 15 MG
     Route: 048
  7. NOVAMIN [Concomitant]
     Indication: NAUSEA
     Dosage: AS USED: 15 MG
     Route: 048
  8. SINGULAIR [Concomitant]
     Indication: ASTHMA
     Dosage: AS USED: 10 MG
     Route: 048
  9. NORVASC [Concomitant]
     Indication: HYPERTENSION
  10. CARDENALIN [Concomitant]
     Indication: HYPERTENSION
     Dosage: AS USED: 1 MG
     Route: 048
  11. TRIAZOLAM [Concomitant]
     Indication: SLEEP DISORDER
     Dosage: AS USED: 0.125 MG
     Route: 048
  12. TRYPTANOL [Concomitant]
     Indication: CANCER PAIN
     Dosage: AS USED: 10 MG
     Route: 048
  13. DICLOFENAC SODIUM SR [Concomitant]
     Indication: CANCER PAIN
     Dosage: AS USED: 75 MG
     Route: 048
  14. OXYCONTIN [Concomitant]
     Indication: CANCER PAIN
     Dosage: AS USED: 60 MG
     Route: 048

REACTIONS (3)
  - DIARRHOEA [None]
  - PERITONITIS [None]
  - RENAL CELL CARCINOMA [None]
